FAERS Safety Report 9780750 (Version 1)
Quarter: 2013Q4

REPORT INFORMATION
  Report Type: Spontaneous
  Country: ES (occurrence: ES)
  Receive Date: 20131224
  Receipt Date: 20131224
  Transmission Date: 20140711
  Serious: Yes (Other)
  Sender: FDA-Public Use
  Company Number: ES-ROCHE-1325218

PATIENT
  Age: 90 Year
  Sex: Male

DRUGS (5)
  1. LUCENTIS [Suspect]
     Indication: AGE-RELATED MACULAR DEGENERATION
     Dosage: REGIMEN 1: 10 MG / ML INJECTABLE SOLUTION OF 1 VIAL 0.23 ML
     Route: 050
     Dates: start: 20130121
  2. LUCENTIS [Suspect]
     Dosage: REGIMEN 2: 10 MG / ML INJECTABLE SOLUTION OF 1 VIAL 0.23 ML
     Route: 050
     Dates: start: 20130220
  3. LUCENTIS [Suspect]
     Dosage: REGIMEN 3: 10 MG / ML INJECTABLE SOLUTION OF 1 VIAL 0.23 ML
     Route: 050
     Dates: start: 20130401
  4. LUCENTIS [Suspect]
     Dosage: REGIMEN 4: 10 MG / ML INJECTABLE SOLUTION OF 1 VIAL 0.23 ML
     Route: 050
     Dates: start: 20130903
  5. SINTROM [Concomitant]

REACTIONS (1)
  - Ischaemic cardiomyopathy [Recovered/Resolved]
